FAERS Safety Report 4599799-3 (Version None)
Quarter: 2005Q1

REPORT INFORMATION
  Report Type: 
  Country: None (occurrence: None)
  Receive Date: 20050303
  Receipt Date: 20050215
  Transmission Date: 20050727
  Serious: Yes (Hospitalization)
  Sender: FDA-Public Use
  Company Number: DSA_26010_2005

PATIENT
  Age: 63 Year
  Sex: Male

DRUGS (9)
  1. DILTIAZEM HYDROCHLORIDE [Suspect]
     Dosage: DF
     Dates: end: 20040222
  2. TRITACE [Suspect]
     Dosage: DF
  3. CYCLOSPORINE [Concomitant]
  4. PREDNISOLONE [Concomitant]
  5. MYCOPHENOLATE [Concomitant]
  6. CALCIUM CARBONATE [Concomitant]
  7. POTASSIUM CHLORIDE [Concomitant]
  8. CALCITRIOL [Concomitant]
  9. VALACYCLOVIR HCL [Concomitant]

REACTIONS (2)
  - BRADYCARDIA [None]
  - SHOCK [None]
